FAERS Safety Report 19990149 (Version 1)
Quarter: 2021Q4

REPORT INFORMATION
  Report Type: Other
  Country: FR (occurrence: FR)
  Receive Date: 20211025
  Receipt Date: 20211025
  Transmission Date: 20220303
  Serious: Yes (Other)
  Sender: FDA-Public Use
  Company Number: FR-ROCHE-2934851

PATIENT
  Age: 34 Year
  Sex: Female

DRUGS (2)
  1. TRASTUZUMAB [Suspect]
     Active Substance: TRASTUZUMAB
     Indication: Lung adenocarcinoma
     Dosage: SECOND INJECTION OF TRASTUZUMAB ON DAY 9
     Route: 030
  2. OSIMERTINIB [Suspect]
     Active Substance: OSIMERTINIB
     Indication: Lung adenocarcinoma
     Route: 065

REACTIONS (5)
  - Oligohydramnios [Unknown]
  - Off label use [Unknown]
  - Off label use [Unknown]
  - Premature labour [Unknown]
  - Maternal exposure during pregnancy [Unknown]
